FAERS Safety Report 5013293-7 (Version None)
Quarter: 2006Q2

REPORT INFORMATION
  Report Type: 
  Country: None (occurrence: None)
  Receive Date: 20060530
  Receipt Date: 20060508
  Transmission Date: 20061013
  Serious: Yes (Other)
  Sender: FDA-Public Use
  Company Number: PHBS2006JP06961

PATIENT
  Age: 35 Year
  Sex: Female

DRUGS (2)
  1. NEORAL [Suspect]
     Route: 065
  2. BETAMETHASONE VALERATE [Concomitant]

REACTIONS (5)
  - BLOOD CALCIUM DECREASED [None]
  - BONE DISORDER [None]
  - HYPOMAGNESAEMIA [None]
  - OSTEOPOROSIS [None]
  - SPINAL COMPRESSION FRACTURE [None]
